APPROVED DRUG PRODUCT: DIFLUPREDNATE
Active Ingredient: DIFLUPREDNATE
Strength: 0.05%
Dosage Form/Route: EMULSION;OPHTHALMIC
Application: A218191 | Product #001 | TE Code: AB
Applicant: UPSHER SMITH LABORATORIES LLC
Approved: Feb 11, 2025 | RLD: No | RS: No | Type: RX